FAERS Safety Report 5202165-0 (Version None)
Quarter: 2007Q1

REPORT INFORMATION
  Report Type: 
  Country: None (occurrence: None)
  Receive Date: 20070109
  Receipt Date: 20070102
  Transmission Date: 20070707
  Serious: No
  Sender: FDA-Public Use
  Company Number: 2007UW00064

PATIENT
  Sex: Female

DRUGS (2)
  1. SEROQUEL [Suspect]
     Route: 048
  2. EFFEXOR [Concomitant]

REACTIONS (3)
  - DRY MOUTH [None]
  - LEUKOPENIA [None]
  - TOOTH LOSS [None]
